FAERS Safety Report 15632793 (Version 1)
Quarter: 2018Q4

REPORT INFORMATION
  Report Type: Report from Study
  Country: US (occurrence: US)
  Receive Date: 20181119
  Receipt Date: 20181119
  Transmission Date: 20190205
  Serious: Yes (Hospitalization, Other)
  Sender: FDA-Public Use
  Company Number: US-SA-2017SA212145

PATIENT
  Age: 76 Year
  Sex: Female

DRUGS (2)
  1. INSULIN GLARGINE [Suspect]
     Active Substance: INSULIN GLARGINE
     Indication: TYPE 2 DIABETES MELLITUS
     Dosage: 60 DF,QD
     Route: 058
     Dates: start: 2002
  2. INSULIN GLARGINE [Suspect]
     Active Substance: INSULIN GLARGINE
     Dosage: 25 DF,QD
     Route: 058

REACTIONS (22)
  - Pain [Unknown]
  - Fall [Unknown]
  - Abdominal discomfort [Unknown]
  - Haemorrhoids [Unknown]
  - Myalgia [Not Recovered/Not Resolved]
  - Anaemia [Not Recovered/Not Resolved]
  - Neuralgia [Unknown]
  - Malaise [Unknown]
  - Skin haemorrhage [Unknown]
  - Contusion [Unknown]
  - Skin burning sensation [Unknown]
  - Localised infection [Recovered/Resolved]
  - Haematochezia [Unknown]
  - Cardiac operation [Unknown]
  - Bladder operation [Unknown]
  - Blood disorder [Not Recovered/Not Resolved]
  - Peripheral swelling [Unknown]
  - Dyspnoea [Unknown]
  - Hip surgery [Unknown]
  - Neoplasm skin [Unknown]
  - Limb injury [Unknown]
  - Blood glucose fluctuation [Not Recovered/Not Resolved]

NARRATIVE: CASE EVENT DATE: 2012
